FAERS Safety Report 7525371-9 (Version None)
Quarter: 2011Q2

REPORT INFORMATION
  Report Type: 
  Country: None (occurrence: None)
  Receive Date: 20110606
  Receipt Date: 20110525
  Transmission Date: 20111010
  Serious: Yes (Other)
  Sender: FDA-Public Use
  Company Number: FR-NOVOPROD-325920

PATIENT
  Age: 60 Year
  Sex: Female
  Weight: 118 kg

DRUGS (15)
  1. FUROSEMIDE [Concomitant]
     Indication: CARDIOMYOPATHY
     Dosage: 20 MG, QD
     Route: 048
  2. REPAGLINIDE [Concomitant]
     Indication: DIABETES MELLITUS
     Dosage: 6 MG, QD
     Route: 048
     Dates: start: 20090101
  3. VICTOZA [Suspect]
     Indication: TYPE 2 DIABETES MELLITUS
     Dosage: 1.8 MG, QD
     Route: 058
     Dates: start: 20100501
  4. METFORMIN HCL [Concomitant]
     Indication: DIABETES MELLITUS
     Dosage: 1400 MG, QD
     Route: 048
     Dates: start: 20100607
  5. OMEPRAZOLE [Concomitant]
     Indication: GASTROOESOPHAGEAL REFLUX DISEASE
     Dosage: 20 MG, QD
     Route: 048
  6. MIRTAZAPINE [Concomitant]
     Indication: DEPRESSION
     Dosage: 15 MG, QD
     Route: 048
  7. VICTOZA [Suspect]
     Dosage: 1.2 MG, QD
     Route: 058
  8. SIMVASTATIN [Concomitant]
     Indication: HYPERLIPIDAEMIA
     Dosage: 40 MG, QD
     Route: 048
     Dates: start: 20100101
  9. DIGOXIN [Concomitant]
     Indication: ATRIAL FIBRILLATION
     Dosage: 0.25 MG, QD
     Route: 048
     Dates: start: 20100101
  10. ATARAX [Concomitant]
     Indication: ANXIETY
     Dosage: 25 MG, QD
     Route: 048
  11. LEXOMIL [Concomitant]
     Indication: ANXIETY
     Dosage: 6 MG, QD
     Route: 048
  12. BISOPROLOL FUMARATE [Concomitant]
     Indication: ATRIAL FIBRILLATION
     Dosage: 7.5 MG, QD
     Route: 048
     Dates: start: 20100101
  13. PREVISCAN                          /00261401/ [Concomitant]
     Indication: ATRIAL FIBRILLATION
     Dosage: 20 MG, QD
     Route: 048
     Dates: start: 20080101
  14. ACETAMINOPHEN [Concomitant]
     Indication: ARTHRALGIA
     Dosage: 2 G, QD
     Route: 048
  15. TIORFAN [Concomitant]
     Indication: DIARRHOEA
     Dosage: 300 MG, QD
     Route: 048

REACTIONS (2)
  - HYPERTRIGLYCERIDAEMIA [None]
  - CONDITION AGGRAVATED [None]
